FAERS Safety Report 5828251-X (Version None)
Quarter: 2008Q3

REPORT INFORMATION
  Report Type: 
  Country: None (occurrence: None)
  Receive Date: 20080731
  Receipt Date: 20080723
  Transmission Date: 20090109
  Serious: Yes (Death, Other)
  Sender: FDA-Public Use
  Company Number: GB-TEVA-151496ISR

PATIENT
  Age: 66 Year
  Sex: Male

DRUGS (4)
  1. DIAZEPAM [Suspect]
     Dates: start: 20060619
  2. ZOPICLONE [Suspect]
     Route: 048
     Dates: start: 20060619
  3. OXYCODONE HCL [Suspect]
     Route: 048
  4. OXYCODONE HCL [Suspect]
     Indication: CANCER PAIN
     Route: 048
     Dates: start: 20060616

REACTIONS (5)
  - CONFUSIONAL STATE [None]
  - DISEASE PROGRESSION [None]
  - HALLUCINATION [None]
  - INSOMNIA [None]
  - LOWER RESPIRATORY TRACT INFECTION [None]
